FAERS Safety Report 6365960-0 (Version None)
Quarter: 2009Q3

REPORT INFORMATION
  Report Type: 
  Country: None (occurrence: None)
  Receive Date: 20090919
  Receipt Date: 20090826
  Transmission Date: 20100115
  Serious: No
  Sender: FDA-Public Use
  Company Number: US-ABBOTT-09P-163-0594048-00

PATIENT
  Sex: Male

DRUGS (10)
  1. HUMIRA [Suspect]
     Indication: CROHN'S DISEASE
     Dosage: PFS
     Route: 058
     Dates: start: 20080101
  2. HUMIRA [Suspect]
     Dosage: PEN
     Route: 058
  3. ALBUTEROL [Concomitant]
     Indication: ASTHMA
  4. ADVAIR HFA [Concomitant]
     Indication: ASTHMA
  5. FLOMAX [Concomitant]
     Indication: DRUG USE FOR UNKNOWN INDICATION
     Route: 048
  6. SEROQUEL [Concomitant]
     Indication: POST-TRAUMATIC STRESS DISORDER
  7. XANAX [Concomitant]
     Indication: POST-TRAUMATIC STRESS DISORDER
  8. VALIUM [Concomitant]
     Indication: POST-TRAUMATIC STRESS DISORDER
  9. ASACOL [Concomitant]
     Indication: CROHN'S DISEASE
  10. COMPAZINE [Concomitant]
     Indication: CROHN'S DISEASE
     Route: 048

REACTIONS (5)
  - DYSPNOEA [None]
  - FLUID RETENTION [None]
  - FUNGAL INFECTION [None]
  - PAIN [None]
  - WEIGHT INCREASED [None]
